FAERS Safety Report 13914335 (Version 1)
Quarter: 2017Q3

REPORT INFORMATION
  Report Type: Spontaneous
  Country: US (occurrence: US)
  Receive Date: 20170829
  Receipt Date: 20170829
  Transmission Date: 20171127
  Serious: No
  Sender: FDA-Public Use
  Company Number: US-PFIZER INC-2017369958

PATIENT
  Age: 59 Year
  Sex: Male

DRUGS (1)
  1. METHOTREXATE SODIUM. [Suspect]
     Active Substance: METHOTREXATE SODIUM
     Dosage: UNK

REACTIONS (5)
  - Gastrointestinal disorder [Unknown]
  - Musculoskeletal disorder [Not Recovered/Not Resolved]
  - Drug intolerance [Unknown]
  - Nausea [Unknown]
  - Musculoskeletal stiffness [Unknown]
